FAERS Safety Report 5750084-3 (Version None)
Quarter: 2008Q2

REPORT INFORMATION
  Report Type: 
  Country: None (occurrence: None)
  Receive Date: 20080523
  Receipt Date: 20080523
  Transmission Date: 20081010
  Serious: Yes (Life-Threatening, Hospitalization, Other)
  Sender: FDA-Public Use
  Company Number: None

PATIENT
  Age: 23 Year
  Sex: Female
  Weight: 65.7716 kg

DRUGS (2)
  1. WELLBUTRIN SR [Suspect]
     Indication: FIBROMYALGIA
     Dosage: 1 TABLET 2 TIMES PER DAY PO
     Route: 048
     Dates: start: 20080505, end: 20080520
  2. TRAMADOL HCL [Suspect]
     Indication: FIBROMYALGIA
     Dosage: 1 OR 2 TABLETS EVERY 6 HR AS NEED PO
     Route: 048
     Dates: start: 20070914, end: 20080520

REACTIONS (7)
  - CONTUSION [None]
  - CONVULSION [None]
  - FALL [None]
  - HEAD INJURY [None]
  - MEDICATION ERROR [None]
  - NAIL DISORDER [None]
  - UNEVALUABLE EVENT [None]
